FAERS Safety Report 4310690-X (Version None)
Quarter: 2004Q1

REPORT INFORMATION
  Report Type: 
  Country: None (occurrence: None)
  Receive Date: 20040302
  Receipt Date: 20040224
  Transmission Date: 20041129
  Serious: Yes (Death, Hospitalization, Other)
  Sender: FDA-Public Use
  Company Number: 200410450GDS

PATIENT
  Age: 69 Year
  Sex: Male

DRUGS (12)
  1. AVELOX [Suspect]
     Indication: PYREXIA
     Dosage: 400 MG, TOTAL DAILY, ORAL
     Route: 048
     Dates: start: 20040130, end: 20040202
  2. GLUCOPHAGE [Concomitant]
  3. AUGMENTIN [Concomitant]
  4. MIXTARD HUMAN 70/30 [Concomitant]
  5. ATROVENT [Concomitant]
  6. SERETIDE ^ALLEN + HANBURYS LTD^ [Concomitant]
  7. MEDROL [Concomitant]
  8. BURINEX [Concomitant]
  9. ALDACTONE [Concomitant]
  10. LOORTAN [Concomitant]
  11. TRINIPATCH [Concomitant]
  12. PRAVASIN [Concomitant]

REACTIONS (27)
  - AMMONIA INCREASED [None]
  - ANOREXIA [None]
  - ASTERIXIS [None]
  - BLOOD GLUCOSE FLUCTUATION [None]
  - BRADYPHRENIA [None]
  - CARDIAC FAILURE [None]
  - COMA [None]
  - CONFUSIONAL STATE [None]
  - DEHYDRATION [None]
  - DYSPNOEA [None]
  - FALL [None]
  - GAIT DISTURBANCE [None]
  - HAEMORRHAGE [None]
  - HEPATIC FAILURE [None]
  - HEPATORENAL FAILURE [None]
  - HYPERKALAEMIA [None]
  - HYPONATRAEMIA [None]
  - INFECTION [None]
  - INSOMNIA [None]
  - MUSCULAR WEAKNESS [None]
  - OEDEMA PERIPHERAL [None]
  - ORTHOPNOEA [None]
  - PETECHIAE [None]
  - PROTHROMBIN TIME PROLONGED [None]
  - PYREXIA [None]
  - SOMNOLENCE [None]
  - VERTIGO [None]
